FAERS Safety Report 24136053 (Version 1)
Quarter: 2024Q3

REPORT INFORMATION
  Report Type: Spontaneous
  Country: CA (occurrence: CA)
  Receive Date: 20240725
  Receipt Date: 20240725
  Transmission Date: 20241016
  Serious: Yes (Other)
  Sender: BAUSCH AND LOMB
  Company Number: CA-BAUSCH-BL-2024-011235

PATIENT
  Age: 42 Year
  Sex: Female

DRUGS (3)
  1. ACYCLOVIR [Suspect]
     Active Substance: ACYCLOVIR
     Indication: Prophylaxis
     Route: 065
  2. MAVENCLAD [Suspect]
     Active Substance: CLADRIBINE
     Indication: Multiple sclerosis
     Route: 048
  3. MAVENCLAD [Suspect]
     Active Substance: CLADRIBINE
     Route: 048

REACTIONS (2)
  - Alopecia [Recovering/Resolving]
  - Lymphocyte count decreased [Recovering/Resolving]
